FAERS Safety Report 7825341-7 (Version None)
Quarter: 2011Q4

REPORT INFORMATION
  Report Type: 
  Country: None (occurrence: None)
  Receive Date: 20111019
  Receipt Date: 20110922
  Transmission Date: 20120403
  Serious: Yes (Other)
  Sender: FDA-Public Use
  Company Number: PHHY2011BR86742

PATIENT
  Age: 58 Year
  Sex: Male
  Weight: 88 kg

DRUGS (5)
  1. HYDROCHLOROTHIAZIDE [Concomitant]
     Dosage: 12.5 MG, UNK
  2. ATENOLOL [Suspect]
     Indication: BLOOD PRESSURE
     Dosage: 50 MG, BID
     Route: 048
  3. CAPTOPRIL [Suspect]
     Indication: BLOOD PRESSURE
     Dosage: 50 MG, TID
     Route: 048
  4. VALSARTAN [Concomitant]
     Dosage: 160 MG, UNK
  5. AMLODIPINE [Concomitant]
     Dosage: 10 MG, QD

REACTIONS (6)
  - BLOOD PRESSURE INADEQUATELY CONTROLLED [None]
  - DIZZINESS [None]
  - COUGH [None]
  - FATIGUE [None]
  - LEFT VENTRICULAR DYSFUNCTION [None]
  - HEADACHE [None]
